FAERS Safety Report 10459879 (Version 3)
Quarter: 2014Q4

REPORT INFORMATION
  Report Type: Report from Study
  Country: AU (occurrence: AU)
  Receive Date: 20140917
  Receipt Date: 20141008
  Transmission Date: 20150528
  Serious: Yes (Hospitalization)
  Sender: FDA-Public Use
  Company Number: PHHY2012AU030424

PATIENT
  Age: 32 Year
  Sex: Male

DRUGS (14)
  1. CLOZARIL [Suspect]
     Active Substance: CLOZAPINE
     Dosage: 350 MG
     Route: 048
     Dates: start: 2011
  2. QUETIAPINE [Concomitant]
     Active Substance: QUETIAPINE
     Dosage: 1 G, NOCTE
  3. LITHIUM [Suspect]
     Active Substance: LITHIUM CARBONATE
     Dosage: 1 G
     Dates: start: 2011
  4. CLOZARIL [Suspect]
     Active Substance: CLOZAPINE
     Indication: SCHIZOPHRENIA
     Dosage: 550 MG
     Route: 048
     Dates: start: 20100225
  5. THYROXINE [Concomitant]
     Active Substance: LEVOTHYROXINE
     Dosage: 250 UG, MANE
  6. GEMFIBROZIL. [Concomitant]
     Active Substance: GEMFIBROZIL
     Dosage: 600 MG, BID
  7. CLOZARIL [Suspect]
     Active Substance: CLOZAPINE
     Dosage: 425 MG, NOCTE
     Route: 048
     Dates: start: 201110, end: 20120328
  8. VALPROIC ACID. [Suspect]
     Active Substance: VALPROIC ACID
     Indication: PRODUCT USED FOR UNKNOWN INDICATION
     Dosage: 800 MG, NOCTE
     Dates: start: 201110, end: 20120328
  9. LITHIUM [Suspect]
     Active Substance: LITHIUM CARBONATE
     Dosage: 750 MG, (250 MG IN MORNNING ANF 500 MG IN NIGHT)
     Dates: start: 201108
  10. HALOPERIDOL. [Concomitant]
     Active Substance: HALOPERIDOL
     Dosage: 10 MG, NOCTE
  11. ATORVASTATIN [Concomitant]
     Active Substance: ATORVASTATIN
     Dosage: 20 MG, NOCTE
  12. QUETIAPINE XR [Concomitant]
     Active Substance: QUETIAPINE
     Dosage: UNK, NOCTE
  13. CLOZARIL [Suspect]
     Active Substance: CLOZAPINE
     Dosage: 500 MG, NOCTE
     Route: 048
  14. HALOPERIDOL. [Concomitant]
     Active Substance: HALOPERIDOL
     Dosage: 5 MG, BID

REACTIONS (16)
  - Abnormal behaviour [Unknown]
  - Persecutory delusion [Unknown]
  - Psychotic disorder [Not Recovered/Not Resolved]
  - White blood cell count decreased [Recovered/Resolved]
  - Neutropenia [Recovered/Resolved]
  - Antipsychotic drug level increased [Not Recovered/Not Resolved]
  - Schizophrenia [Unknown]
  - Haematocrit decreased [Not Recovered/Not Resolved]
  - Hallucination, auditory [Unknown]
  - Homicidal ideation [Unknown]
  - Elevated mood [Unknown]
  - Pyromania [Unknown]
  - Malaise [Unknown]
  - Hallucination [Unknown]
  - Delusion [Unknown]
  - Sleep disorder [Unknown]

NARRATIVE: CASE EVENT DATE: 20120328
